FAERS Safety Report 8355037-7 (Version None)
Quarter: 2012Q2

REPORT INFORMATION
  Report Type: 
  Country: None (occurrence: None)
  Receive Date: 20120511
  Receipt Date: 20120504
  Transmission Date: 20120825
  Serious: Yes (Other)
  Sender: FDA-Public Use
  Company Number: DE-BAXTER-2012BAX005108

PATIENT

DRUGS (6)
  1. DEXAMETHASONE [Concomitant]
     Indication: VOMITING
  2. DEXAMETHASONE [Concomitant]
     Indication: NAUSEA
  3. IFOSFAMIDE [Suspect]
     Indication: SARCOMA
  4. GRANISETRON [Concomitant]
     Indication: VOMITING
  5. GRANISETRON [Concomitant]
     Indication: NAUSEA
  6. DOXORUBICIN HCL [Suspect]
     Indication: SARCOMA
     Route: 042

REACTIONS (1)
  - GASTRIC CANCER [None]
